FAERS Safety Report 23427940 (Version 2)
Quarter: 2024Q4

REPORT INFORMATION
  Report Type: Spontaneous
  Country: US (occurrence: US)
  Receive Date: 20240122
  Receipt Date: 20241231
  Transmission Date: 20250115
  Serious: No
  Sender: PFIZER
  Company Number: US-PFIZER INC-PV202400008713

PATIENT
  Age: 86 Year
  Sex: Female

DRUGS (2)
  1. IBRANCE [Suspect]
     Active Substance: PALBOCICLIB
     Indication: Breast cancer female
     Dosage: 100 MG, CYCLIC, 28-DAY SUPPLY
     Route: 048
  2. IBRANCE [Suspect]
     Active Substance: PALBOCICLIB
     Dosage: TAKE 125 MG BY MOUTH DAILY 3 WEEKS ON 1 WEEK OFF IN 21 DAY CYCLE
     Route: 048

REACTIONS (4)
  - Neoplasm progression [Unknown]
  - Mental disorder [Unknown]
  - Osteoporosis [Unknown]
  - Product prescribing error [Unknown]
